FAERS Safety Report 8101360-0 (Version None)
Quarter: 2012Q1

REPORT INFORMATION
  Report Type: 
  Country: None (occurrence: None)
  Receive Date: 20120129
  Receipt Date: 20110927
  Transmission Date: 20120608
  Serious: No
  Sender: FDA-Public Use
  Company Number: US-ABBOTT-11P-163-0858428-00

PATIENT
  Age: 18 Year
  Sex: Male

DRUGS (6)
  1. ALBUTEROL [Concomitant]
     Indication: ASTHMA
     Dosage: PRN
  2. HUMIRA [Suspect]
     Indication: CROHN'S DISEASE
     Dosage: LOADING DOSE
     Dates: start: 20110910
  3. BENTYL [Concomitant]
     Indication: PRODUCT USED FOR UNKNOWN INDICATION
     Dosage: PRN
  4. SINGULAIR [Concomitant]
     Indication: SEASONAL ALLERGY
     Dosage: DAILY
  5. DAYTRANA [Concomitant]
     Indication: ATTENTION DEFICIT/HYPERACTIVITY DISORDER
     Dosage: DAILY
  6. PREDNISONE TAB [Concomitant]
     Indication: PRODUCT USED FOR UNKNOWN INDICATION
     Dosage: DAILY

REACTIONS (3)
  - ARTHRALGIA [None]
  - HEADACHE [None]
  - FATIGUE [None]
